FAERS Safety Report 8986791 (Version 1)
Quarter: 2012Q4

REPORT INFORMATION
  Report Type: 
  Country: US (occurrence: US)
  Receive Date: 20121227
  Receipt Date: 20121227
  Transmission Date: 20130627
  Serious: Yes (Hospitalization, Other)
  Sender: FDA-Public Use
  Company Number: US-AMGEN-USASP2012082569

PATIENT
  Age: 56 Year
  Sex: Female

DRUGS (1)
  1. ENBREL [Suspect]
     Indication: PSORIATIC ARTHROPATHY
     Dosage: 50 mg, qwk
     Dates: start: 20100101

REACTIONS (9)
  - Stroke in evolution [Recovered/Resolved]
  - Gastric polyps [Recovered/Resolved]
  - Intestinal polyp [Recovered/Resolved]
  - Gastritis [Recovered/Resolved]
  - Post procedural haemorrhage [Recovered/Resolved]
  - Haemoglobin decreased [Recovered/Resolved]
  - Cerebrovascular accident [Recovered/Resolved]
  - Chest pain [Recovered/Resolved]
  - Injection site bruising [Not Recovered/Not Resolved]
